FAERS Safety Report 8851674 (Version 3)
Quarter: 2012Q4

REPORT INFORMATION
  Report Type: 
  Country: US (occurrence: US)
  Receive Date: 20121022
  Receipt Date: 20121227
  Transmission Date: 20130627
  Serious: No
  Sender: FDA-Public Use
  Company Number: US-009507513-1210USA008132

PATIENT
  Age: 63 None
  Sex: Male

DRUGS (4)
  1. PEGINTRON [Suspect]
     Indication: CHRONIC HEPATITIS C
     Dosage: 150 Microgram, qw (Peg-Intron Redipen IJ KIT 150 Y)
     Route: 058
     Dates: start: 20120827
  2. PEGINTRON [Suspect]
     Dosage: UNK
  3. RIBAPAK [Suspect]
  4. TELAPREVIR [Suspect]

REACTIONS (3)
  - Anorectal discomfort [Unknown]
  - Anorectal discomfort [Not Recovered/Not Resolved]
  - Pruritus generalised [Not Recovered/Not Resolved]
